FAERS Safety Report 6729830-8 (Version None)
Quarter: 2010Q2

REPORT INFORMATION
  Report Type: 
  Country: None (occurrence: None)
  Receive Date: 20100518
  Receipt Date: 20100510
  Transmission Date: 20101027
  Serious: Yes (Death, Hospitalization)
  Sender: FDA-Public Use
  Company Number: BR-MEDIMMUNE-MEDI-0011184

PATIENT
  Sex: Male
  Weight: 3.2 kg

DRUGS (4)
  1. SYNAGIS [Suspect]
     Route: 030
     Dates: start: 20100421, end: 20100421
  2. SYNAGIS [Suspect]
  3. PNEUMOCOCCAL VACCINE [Concomitant]
     Dates: start: 20100421, end: 20100421
  4. FUROSEMIDE [Concomitant]

REACTIONS (3)
  - CARDIAC ARREST [None]
  - CONVULSION [None]
  - WOLF-HIRSCHHORN SYNDROME [None]
